FAERS Safety Report 17038258 (Version 2)
Quarter: 2020Q2

REPORT INFORMATION
  Report Type: Spontaneous
  Country: US (occurrence: US)
  Receive Date: 20191115
  Receipt Date: 20200528
  Transmission Date: 20200713
  Serious: Yes (Hospitalization, Other)
  Sender: FDA-Public Use
  Company Number: US-ASTRAZENECA-2019SF60246

PATIENT
  Age: 21911 Day
  Sex: Female
  Weight: 141.7 kg

DRUGS (39)
  1. VASOPRESSIN. [Concomitant]
     Active Substance: VASOPRESSIN
  2. SEVOFLURANE. [Concomitant]
     Active Substance: SEVOFLURANE
  3. DULAGLUTIDE. [Concomitant]
     Active Substance: DULAGLUTIDE
  4. ZOFRAN [Concomitant]
     Active Substance: ONDANSETRON HYDROCHLORIDE
  5. PROPOFOL. [Concomitant]
     Active Substance: PROPOFOL
  6. FENTANYL. [Concomitant]
     Active Substance: FENTANYL
  7. LORTAB [Concomitant]
     Active Substance: ACETAMINOPHEN\HYDROCODONE BITARTRATE
  8. MORPHINE [Concomitant]
     Active Substance: MORPHINE
  9. ISOFLURANE. [Concomitant]
     Active Substance: ISOFLURANE
  10. DILAUDID [Concomitant]
     Active Substance: HYDROMORPHONE HYDROCHLORIDE
  11. PROTONIX [Concomitant]
     Active Substance: PANTOPRAZOLE SODIUM
  12. DUONEB [Concomitant]
     Active Substance: ALBUTEROL SULFATE\IPRATROPIUM BROMIDE
  13. HYDRALAZINE [Concomitant]
     Active Substance: HYDRALAZINE HYDROCHLORIDE
  14. MERREM [Concomitant]
     Active Substance: MEROPENEM
  15. ZOLOFT [Concomitant]
     Active Substance: SERTRALINE HYDROCHLORIDE
  16. TYLENOL [Concomitant]
     Active Substance: ACETAMINOPHEN
  17. ROCURONIUM [Concomitant]
     Active Substance: ROCURONIUM BROMIDE
  18. VANCOMYCIN [Concomitant]
     Active Substance: VANCOMYCIN
  19. ZOSYN [Concomitant]
     Active Substance: PIPERACILLIN SODIUM\TAZOBACTAM SODIUM
  20. NORVASC [Concomitant]
     Active Substance: AMLODIPINE BESYLATE
  21. JANUVIA [Concomitant]
     Active Substance: SITAGLIPTIN PHOSPHATE
  22. SUCCINYLCHOLINE [Concomitant]
     Active Substance: SUCCINYLCHOLINE
  23. PHENYLEPHRINE [Concomitant]
     Active Substance: PHENYLEPHRINE HYDROCHLORIDE
  24. GLUCAGON. [Concomitant]
     Active Substance: GLUCAGON
  25. BUSPIRONE [Concomitant]
     Active Substance: BUSPIRONE HYDROCHLORIDE
  26. LIDOCAINE. [Concomitant]
     Active Substance: LIDOCAINE
  27. LEVEMIR [Concomitant]
     Active Substance: INSULIN DETEMIR
  28. HEPARIN [Concomitant]
     Active Substance: HEPARIN SODIUM
  29. ZYVOX [Concomitant]
     Active Substance: LINEZOLID
  30. FARXIGA [Suspect]
     Active Substance: DAPAGLIFLOZIN PROPANEDIOL
     Indication: TYPE 2 DIABETES MELLITUS
     Route: 048
     Dates: start: 201705, end: 201801
  31. FARXIGA [Suspect]
     Active Substance: DAPAGLIFLOZIN PROPANEDIOL
     Indication: WEIGHT DECREASED
     Route: 048
     Dates: start: 201705, end: 201801
  32. FARXIGA [Suspect]
     Active Substance: DAPAGLIFLOZIN PROPANEDIOL
     Indication: BLOOD PRESSURE DECREASED
     Route: 048
     Dates: start: 201705, end: 201801
  33. NOREPINEPHRINE. [Concomitant]
     Active Substance: NOREPINEPHRINE
  34. SENNA [Concomitant]
     Active Substance: SENNA LEAF\SENNOSIDES\SENNOSIDES A AND B
  35. METOPROLOL TARTRATE. [Concomitant]
     Active Substance: METOPROLOL TARTRATE
  36. OMEPRAZOLE. [Concomitant]
     Active Substance: OMEPRAZOLE
  37. VECURONIUM [Concomitant]
     Active Substance: VECURONIUM BROMIDE
  38. MIDAZOLAM. [Concomitant]
     Active Substance: MIDAZOLAM
  39. NYSTATIN. [Concomitant]
     Active Substance: NYSTATIN

REACTIONS (8)
  - Fournier^s gangrene [Unknown]
  - Clostridial sepsis [Unknown]
  - Perirectal abscess [Unknown]
  - Renal failure [Unknown]
  - Perineal abscess [Unknown]
  - Acute kidney injury [Unknown]
  - Renal tubular necrosis [Unknown]
  - Abscess limb [Unknown]

NARRATIVE: CASE EVENT DATE: 20180112
